FAERS Safety Report 12179949 (Version 2)
Quarter: 2016Q1

REPORT INFORMATION
  Report Type: Spontaneous
  Country: SE (occurrence: SE)
  Receive Date: 20160314
  Receipt Date: 20160329
  Transmission Date: 20160526
  Serious: Yes (Other)
  Sender: FDA-Public Use
  Company Number: SE-TEIKOKU PHARMA USA-TPU2016-00174

PATIENT
  Age: 29 Year
  Sex: Female
  Weight: 71 kg

DRUGS (5)
  1. SAROTEN [Suspect]
     Active Substance: AMITRIPTYLINE
     Indication: NERVE INJURY
     Route: 065
     Dates: start: 201505
  2. BOTOX [Suspect]
     Active Substance: ONABOTULINUMTOXINA
     Indication: NERVE INJURY
     Dates: start: 201509, end: 201512
  3. VERSATIS [Suspect]
     Active Substance: LIDOCAINE
     Indication: NERVE INJURY
     Route: 061
     Dates: start: 201505
  4. LEVAXIN [Concomitant]
     Active Substance: LEVOTHYROXINE SODIUM
  5. VITAMIN D [Concomitant]
     Active Substance: CHOLECALCIFEROL

REACTIONS (2)
  - Weight increased [Not Recovered/Not Resolved]
  - Acne [Not Recovered/Not Resolved]

NARRATIVE: CASE EVENT DATE: 20150901
